FAERS Safety Report 5763260-0 (Version None)
Quarter: 2008Q2

REPORT INFORMATION
  Report Type: 
  Country: None (occurrence: None)
  Receive Date: 20080604
  Receipt Date: 20080604
  Transmission Date: 20081010
  Serious: Yes (Other)
  Sender: FDA-Public Use
  Company Number: None

PATIENT
  Age: 72 Year
  Sex: Male
  Weight: 140.6151 kg

DRUGS (1)
  1. AVODART [Suspect]
     Indication: NOCTURIA
     Dosage: ONE CAPSULE BY MOUTH DAILY PO
     Route: 048
     Dates: start: 20071112, end: 20080102

REACTIONS (3)
  - BREAST TENDERNESS [None]
  - PAIN [None]
  - SWELLING [None]
